FAERS Safety Report 5812102-3 (Version None)
Quarter: 2008Q3

REPORT INFORMATION
  Report Type: 
  Country: None (occurrence: None)
  Receive Date: 20080716
  Receipt Date: 20080703
  Transmission Date: 20090109
  Serious: No
  Sender: FDA-Public Use
  Company Number: US-BOEHRINGER INGELHEIM GMBH, GERMANY-2008-BP-10372BP

PATIENT
  Sex: Male

DRUGS (8)
  1. SPIRIVA [Suspect]
     Indication: CHRONIC OBSTRUCTIVE PULMONARY DISEASE
     Route: 055
  2. FLOMAX [Suspect]
     Indication: PROSTATIC DISORDER
     Route: 048
  3. AMIODARONE HCL [Concomitant]
     Indication: CARDIAC DISORDER
     Route: 048
  4. METOCLOPRAM [Concomitant]
     Indication: OESOPHAGEAL DISORDER
     Route: 048
  5. TEMAZEPAM [Concomitant]
     Indication: THYROID DISORDER
     Route: 048
  6. LEVOTHYROINE [Concomitant]
     Indication: SLEEP DISORDER
     Route: 048
  7. XOPENEX [Concomitant]
     Indication: CHRONIC OBSTRUCTIVE PULMONARY DISEASE
     Route: 055
  8. XOPENEX [Concomitant]
     Route: 055

REACTIONS (2)
  - DRUG INEFFECTIVE [None]
  - URINARY TRACT INFECTION [None]
